FAERS Safety Report 8786010 (Version 2)
Quarter: 2012Q4

REPORT INFORMATION
  Report Type: Spontaneous
  Country: ES (occurrence: None)
  Receive Date: 20120905
  Receipt Date: 20120911
  Transmission Date: 20130627
  Serious: Yes (Life-Threatening)
  Sender: FDA-Public Use
  Company Number: FK201202520

PATIENT
  Age: 32 Year
  Sex: Female

DRUGS (3)
  1. PROPOFOL [Suspect]
     Indication: INDUCTION OF ANAESTHESIA
  2. FENTANYL [Suspect]
     Indication: SURGERY
  3. ONDANSETRON (ONDANSETRON) [Suspect]

REACTIONS (3)
  - Haemodynamic instability [None]
  - Cardiac failure acute [None]
  - Cardiogenic shock [None]
